FAERS Safety Report 24237488 (Version 1)
Quarter: 2024Q3

REPORT INFORMATION
  Report Type: Spontaneous
  Country: DE (occurrence: DE)
  Receive Date: 20240822
  Receipt Date: 20240822
  Transmission Date: 20241017
  Serious: Yes (Other)
  Sender: ROCHE
  Company Number: DE-ROCHE-10000059337

PATIENT
  Sex: Female

DRUGS (1)
  1. OCREVUS [Suspect]
     Active Substance: OCRELIZUMAB
     Indication: Multiple sclerosis
     Dosage: LAST OCRELIZUMAB IN -APR-2024
     Route: 065

REACTIONS (3)
  - Encephalitis autoimmune [Unknown]
  - Seizure [Unknown]
  - Cognitive disorder [Unknown]
